FAERS Safety Report 8625465-0 (Version None)
Quarter: 2012Q3

REPORT INFORMATION
  Report Type: 
  Country: None (occurrence: None)
  Receive Date: 20120827
  Receipt Date: 20111003
  Transmission Date: 20120928
  Serious: Yes (Death, Hospitalization)
  Sender: FDA-Public Use
  Company Number: NL-ROCHE-1001739

PATIENT
  Sex: Male

DRUGS (7)
  1. GLYBURIDE [Concomitant]
  2. ROSUVASTATIN [Concomitant]
  3. AVASTIN [Suspect]
     Indication: COLORECTAL CANCER
     Route: 042
     Dates: start: 20101206
  4. AUGMENTIN '500' [Concomitant]
  5. OXALIPLATIN [Suspect]
     Indication: COLORECTAL CANCER
     Route: 042
     Dates: start: 20101206
  6. XELODA [Suspect]
     Indication: COLORECTAL CANCER
     Route: 048
     Dates: start: 20101206
  7. TELMISARTAN [Concomitant]

REACTIONS (3)
  - RESPIRATORY FAILURE [None]
  - DYSPNOEA [None]
  - CARDIAC ARREST [None]
